FAERS Safety Report 6917663-9 (Version None)
Quarter: 2010Q3

REPORT INFORMATION
  Report Type: 
  Country: None (occurrence: None)
  Receive Date: 20100806
  Receipt Date: 20100722
  Transmission Date: 20110219
  Serious: Yes (Other)
  Sender: FDA-Public Use
  Company Number: CN-JNJFOC-20100707894

PATIENT
  Age: 51 Year
  Sex: Male

DRUGS (1)
  1. DACOGEN [Suspect]
     Indication: MYELODYSPLASTIC SYNDROME
     Dosage: 50 MG, INTRAVENOUS DRIP
     Route: 041
     Dates: start: 20100401, end: 20100405

REACTIONS (4)
  - INFECTION [None]
  - PLATELET COUNT DECREASED [None]
  - RED BLOOD CELL COUNT [None]
  - WHITE BLOOD CELL COUNT DECREASED [None]
